FAERS Safety Report 7117541-9 (Version None)
Quarter: 2010Q4

REPORT INFORMATION
  Report Type: 
  Country: None (occurrence: None)
  Receive Date: 20101122
  Receipt Date: 20101115
  Transmission Date: 20110411
  Serious: Yes (Hospitalization, Other)
  Sender: FDA-Public Use
  Company Number: JP-PFIZER INC-2010148483

PATIENT
  Age: 83 Year
  Sex: Female
  Weight: 44 kg

DRUGS (24)
  1. SILDENAFIL CITRATE [Suspect]
     Indication: PULMONARY ARTERIAL HYPERTENSION
     Dosage: 20 MG, 1X/DAY
     Route: 048
     Dates: start: 20090128, end: 20090201
  2. SILDENAFIL CITRATE [Suspect]
     Dosage: 20 MG, 2X/DAY
     Route: 048
     Dates: start: 20090201
  3. ASPIRIN [Concomitant]
     Dosage: UNK
     Route: 048
  4. TAKEPRON [Concomitant]
     Dosage: UNK
     Route: 048
  5. CLARITHROMYCIN [Concomitant]
     Dosage: UNK
     Route: 048
     Dates: start: 20090131, end: 20090615
  6. DORNER [Concomitant]
     Indication: PULMONARY HYPERTENSION
     Dosage: UNK
     Route: 048
  7. FLUITRAN [Concomitant]
     Dosage: UNK
     Route: 048
  8. ZYLORIC ^GLAXO WELLCOME^ [Concomitant]
     Dosage: UNK
     Route: 048
  9. TORASEMIDE [Concomitant]
     Dosage: UNK
     Route: 048
  10. SLOW-K [Concomitant]
     Dosage: UNK
     Route: 048
     Dates: start: 20090303
  11. ARTIST [Concomitant]
     Dosage: UNK
     Route: 048
     Dates: start: 20090311
  12. LENDORMIN [Concomitant]
     Dosage: UNK
     Route: 048
  13. SENNOSIDE A+B [Concomitant]
     Dosage: UNK
     Route: 048
     Dates: start: 20090429, end: 20090429
  14. NOVORAPID [Concomitant]
     Dosage: UNK
     Route: 058
  15. CLARITIN [Concomitant]
     Dosage: UNK
     Route: 048
     Dates: start: 20090616, end: 20090706
  16. CLARITIN [Concomitant]
     Dosage: UNK
     Route: 048
     Dates: start: 20090616, end: 20090706
  17. CYANOCOBALAMIN [Concomitant]
     Dosage: UNK
     Route: 048
     Dates: start: 20090629, end: 20090706
  18. CYANOCOBALAMIN [Concomitant]
     Dosage: UNK
     Route: 048
     Dates: start: 20090629, end: 20090706
  19. HEPARIN [Concomitant]
     Dosage: UNK
     Route: 042
     Dates: start: 20090704, end: 20090709
  20. EPOGIN [Concomitant]
     Dosage: UNK
     Route: 042
     Dates: start: 20090716, end: 20090716
  21. EPOGIN [Concomitant]
     Dosage: UNK
     Route: 042
     Dates: start: 20090508, end: 20090508
  22. LOXONIN [Concomitant]
     Dosage: UNK
     Route: 062
     Dates: start: 20090601, end: 20090601
  23. DEPAS [Concomitant]
     Dosage: UNK
     Route: 048
     Dates: start: 20090601, end: 20090615
  24. GLUCOSE [Concomitant]
     Dosage: UNK
     Route: 048
     Dates: start: 20090601, end: 20090601

REACTIONS (6)
  - ATELECTASIS [None]
  - CARDIAC FAILURE CHRONIC [None]
  - DEMENTIA [None]
  - HYPOGLYCAEMIA [None]
  - PLEURAL EFFUSION [None]
  - PNEUMONIA [None]
